FAERS Safety Report 22524939 (Version 5)
Quarter: 2023Q4

REPORT INFORMATION
  Report Type: Spontaneous
  Country: GR (occurrence: GR)
  Receive Date: 20230606
  Receipt Date: 20231026
  Transmission Date: 20240110
  Serious: No
  Sender: FDA-Public Use
  Company Number: GR-PFIZER INC-PV202300096076

PATIENT
  Age: 7 Year
  Sex: Female
  Weight: 14 kg

DRUGS (2)
  1. GENOTROPIN [Suspect]
     Active Substance: SOMATROPIN
     Indication: Growth hormone deficiency
     Dosage: 0.5 MG, CYCLIC (0.5MG X 6 DAYS WITH 1DAY-OFF)
     Route: 058
     Dates: start: 20211213
  2. GENOTROPIN [Suspect]
     Active Substance: SOMATROPIN
     Dosage: 0.5 MG, CYCLIC (0.5MG X 6 DAYS WITH 1DAY-OFF)
     Route: 058
     Dates: start: 20211213

REACTIONS (2)
  - Incorrect dose administered by device [Unknown]
  - Device leakage [Unknown]
